FAERS Safety Report 7951131-0 (Version None)
Quarter: 2011Q4

REPORT INFORMATION
  Report Type: 
  Country: None (occurrence: None)
  Receive Date: 20111123
  Receipt Date: 20111109
  Transmission Date: 20120403
  Serious: Yes (Other)
  Sender: FDA-Public Use
  Company Number: 2011SP044536

PATIENT
  Age: 56 Year
  Sex: Male
  Weight: 104.3273 kg

DRUGS (2)
  1. LOTRIMIN AF [Suspect]
     Indication: TINEA CRURIS
     Dosage: QD;TOP
     Route: 061
  2. INHALERS [Concomitant]

REACTIONS (6)
  - MENTAL IMPAIRMENT [None]
  - ACCIDENTAL EXPOSURE [None]
  - CONDITION AGGRAVATED [None]
  - DRUG INEFFECTIVE [None]
  - DYSPNOEA [None]
  - ASTHMA [None]
